FAERS Safety Report 18146081 (Version 1)
Quarter: 2020Q3

REPORT INFORMATION
  Report Type: Spontaneous
  Country: US (occurrence: US)
  Receive Date: 20200813
  Receipt Date: 20200813
  Transmission Date: 20201103
  Serious: Yes (Death, Other)
  Sender: FDA-Public Use
  Company Number: US-MYLANLABS-2020M1070890

PATIENT
  Age: 29 Year
  Sex: Female

DRUGS (14)
  1. CYCLOPHOSPHAMIDE. [Suspect]
     Active Substance: CYCLOPHOSPHAMIDE
     Indication: INVASIVE DUCTAL BREAST CARCINOMA
     Dosage: CHEMOTHERAPY
     Route: 065
  2. CARBOPLATIN. [Suspect]
     Active Substance: CARBOPLATIN
     Indication: INVASIVE DUCTAL BREAST CARCINOMA
     Dosage: CHEMOTHERAPY
     Route: 065
  3. CARBOPLATIN. [Suspect]
     Active Substance: CARBOPLATIN
     Indication: INTRADUCTAL PROLIFERATIVE BREAST LESION
  4. METHOTREXATE. [Suspect]
     Active Substance: METHOTREXATE
     Indication: INTRADUCTAL PROLIFERATIVE BREAST LESION
     Dosage: CHEMOTHERAPY
     Route: 065
  5. DOXORUBICIN [Suspect]
     Active Substance: DOXORUBICIN
     Indication: INTRADUCTAL PROLIFERATIVE BREAST LESION
  6. GEMCITABINE. [Suspect]
     Active Substance: GEMCITABINE
     Indication: INVASIVE DUCTAL BREAST CARCINOMA
     Dosage: CHEMOTHERAPY
     Route: 065
  7. CYCLOPHOSPHAMIDE. [Suspect]
     Active Substance: CYCLOPHOSPHAMIDE
     Indication: INTRADUCTAL PROLIFERATIVE BREAST LESION
  8. XELODA [Suspect]
     Active Substance: CAPECITABINE
     Indication: INTRADUCTAL PROLIFERATIVE BREAST LESION
  9. DOXORUBICIN [Suspect]
     Active Substance: DOXORUBICIN
     Indication: INVASIVE DUCTAL BREAST CARCINOMA
     Dosage: CHEMOTHERAPY
     Route: 065
  10. METHOTREXATE. [Suspect]
     Active Substance: METHOTREXATE
     Indication: INVASIVE DUCTAL BREAST CARCINOMA
  11. FLUOROURACIL. [Suspect]
     Active Substance: FLUOROURACIL
     Indication: INTRADUCTAL PROLIFERATIVE BREAST LESION
  12. XELODA [Suspect]
     Active Substance: CAPECITABINE
     Indication: INVASIVE DUCTAL BREAST CARCINOMA
     Dosage: CHEMOTHERAPY
     Route: 065
  13. GEMCITABINE. [Suspect]
     Active Substance: GEMCITABINE
     Indication: INTRADUCTAL PROLIFERATIVE BREAST LESION
  14. FLUOROURACIL. [Suspect]
     Active Substance: FLUOROURACIL
     Indication: INVASIVE DUCTAL BREAST CARCINOMA
     Dosage: CHEMOTHERAPY
     Route: 065

REACTIONS (9)
  - Respiratory failure [Fatal]
  - Pneumonia [Fatal]
  - Pulmonary fibrosis [Unknown]
  - Spleen disorder [Fatal]
  - Liver disorder [Fatal]
  - Pulmonary alveolar haemorrhage [Unknown]
  - Lung disorder [Fatal]
  - Granuloma [Fatal]
  - Pulmonary oedema [Unknown]
